FAERS Safety Report 5530126-0 (Version None)
Quarter: 2007Q4

REPORT INFORMATION
  Report Type: 
  Country: None (occurrence: None)
  Receive Date: 20071130
  Receipt Date: 20071127
  Transmission Date: 20080405
  Serious: Yes (Death, Other)
  Sender: FDA-Public Use
  Company Number: PHBS2007BR19931

PATIENT
  Age: 67 Year
  Sex: Male
  Weight: 57 kg

DRUGS (3)
  1. EXELON [Suspect]
     Indication: DEMENTIA ALZHEIMER'S TYPE
     Dosage: 1 TAB AM AND PM
     Route: 048
     Dates: start: 19930101, end: 20020101
  2. NIMODIPINE [Concomitant]
     Dosage: 1 TAB AM AND PM
     Route: 048
  3. NEULEPTIL [Concomitant]
     Indication: SEDATIVE THERAPY
     Dosage: 4 DRP, QD
     Route: 048

REACTIONS (7)
  - AGITATION [None]
  - CARDIAC ARREST [None]
  - CHEST PAIN [None]
  - DIARRHOEA [None]
  - INSOMNIA [None]
  - LISTLESS [None]
  - PANIC DISORDER [None]
